FAERS Safety Report 6668376-2 (Version None)
Quarter: 2010Q2

REPORT INFORMATION
  Report Type: 
  Country: None (occurrence: None)
  Receive Date: 20100401
  Receipt Date: 20100318
  Transmission Date: 20101027
  Serious: Yes (Congenital Anomaly)
  Sender: FDA-Public Use
  Company Number: 1000012846

PATIENT

DRUGS (1)
  1. CARBAMAZEPINE [Suspect]
     Dosage: 600 MG, TRANSPLACENTAL
     Route: 064

REACTIONS (3)
  - CLEFT LIP [None]
  - CLEFT PALATE [None]
  - MATERNAL DRUGS AFFECTING FOETUS [None]
